FAERS Safety Report 4635208-3 (Version None)
Quarter: 2005Q2

REPORT INFORMATION
  Report Type: 
  Country: None (occurrence: None)
  Receive Date: 20050414
  Receipt Date: 20040217
  Transmission Date: 20051028
  Serious: Yes (Hospitalization, Other)
  Sender: FDA-Public Use
  Company Number: FR-NOVOPROD-242393

PATIENT
  Age: 68 Year
  Sex: Male
  Weight: 70 kg

DRUGS (12)
  1. ACTRAPID [Suspect]
     Indication: DIABETES MELLITUS NON-INSULIN-DEPENDENT
     Dates: start: 20041222
  2. ALDACTONE [Concomitant]
     Dosage: 50 MG, QD
     Route: 048
     Dates: start: 20041227
  3. CALCIPARINE [Concomitant]
     Dosage: .2 MG, BID
     Route: 058
     Dates: start: 20041222
  4. SUFENTA [Concomitant]
     Dates: start: 20041222, end: 20050106
  5. VANCOCIN HCL [Concomitant]
     Dosage: 2 UNK, QD
     Route: 042
     Dates: start: 20041227
  6. NEXIUM [Concomitant]
     Dosage: 40 MG, QD
     Route: 048
     Dates: start: 20041225, end: 20050107
  7. METFORMIN HCL [Concomitant]
  8. KENZEN [Concomitant]
  9. AMLOR [Concomitant]
  10. PRAVASTATIN [Concomitant]
  11. DIPRIVAN [Concomitant]
  12. QUININE SULFATE [Concomitant]

REACTIONS (9)
  - CEREBRAL MALARIA [None]
  - CHOLESTASIS [None]
  - CONVULSION [None]
  - DIARRHOEA [None]
  - ENTEROCOCCAL INFECTION [None]
  - LUNG DISORDER [None]
  - PLASMODIUM FALCIPARUM INFECTION [None]
  - PNEUMONIA KLEBSIELLA [None]
  - RESUSCITATION [None]
